FAERS Safety Report 5149805-2 (Version None)
Quarter: 2006Q4

REPORT INFORMATION
  Report Type: 
  Country: None (occurrence: None)
  Receive Date: 20061108
  Receipt Date: 20061026
  Transmission Date: 20070319
  Serious: Yes (Other)
  Sender: FDA-Public Use
  Company Number: 231905

PATIENT
  Age: 79 Year
  Sex: Female

DRUGS (4)
  1. RITUXAN [Suspect]
     Indication: B-CELL LYMPHOMA
  2. CYCLOPHOSPHAMIDE [Suspect]
     Indication: B-CELL LYMPHOMA
  3. VINCRISTINE [Suspect]
     Indication: B-CELL LYMPHOMA
  4. PREDNISONE TAB [Suspect]
     Indication: B-CELL LYMPHOMA

REACTIONS (2)
  - ILEUS [None]
  - NEUTROPENIA [None]
